FAERS Safety Report 20948821 (Version 3)
Quarter: 2022Q3

REPORT INFORMATION
  Report Type: Report from Study
  Country: CZ (occurrence: CZ)
  Receive Date: 20220612
  Receipt Date: 20220701
  Transmission Date: 20221026
  Serious: Yes (Hospitalization, Other)
  Sender: FDA-Public Use
  Company Number: CZ-CELLTRION INC.-2022CZ008755

PATIENT

DRUGS (27)
  1. RITUXIMAB [Suspect]
     Active Substance: RITUXIMAB
     Indication: Diffuse large B-cell lymphoma stage IV
     Dosage: 375 DF (375 MG/M2, EVERY 3 WK)
     Route: 042
     Dates: start: 20220331
  2. PREDNISONE [Suspect]
     Active Substance: PREDNISONE
     Indication: Diffuse large B-cell lymphoma stage IV
     Dosage: 100 MG, QD
     Route: 048
     Dates: start: 20220407, end: 20220410
  3. PREDNISONE [Suspect]
     Active Substance: PREDNISONE
     Dosage: UNK
     Route: 065
  4. CYCLOPHOSPHAMIDE [Suspect]
     Active Substance: CYCLOPHOSPHAMIDE
     Indication: Diffuse large B-cell lymphoma stage IV
     Dosage: 400 DF EVERY 3 WEEK (400 MG/M2, EVERY 3 WK)
     Route: 042
     Dates: start: 20220331, end: 20220331
  5. DOXORUBICIN [Suspect]
     Active Substance: DOXORUBICIN
     Indication: Diffuse large B-cell lymphoma stage IV
     Dosage: 25 DF (25 MG/M2, EVERY 3 WK (ADDITIONAL INFORMATION ON DRUG: PRODUCT NAME: DOXIL 20MG/10ML)
     Route: 042
     Dates: start: 20220331, end: 20220331
  6. VINCRISTINE SULFATE [Suspect]
     Active Substance: VINCRISTINE SULFATE
     Indication: Diffuse large B-cell lymphoma stage IV
     Dosage: 1 MG/M2, EVERY 3 WK
     Route: 042
     Dates: start: 20220331, end: 20220331
  7. GRANISETRON HYDROCHLORIDE [Concomitant]
     Active Substance: GRANISETRON HYDROCHLORIDE
     Dosage: UNK
     Route: 065
     Dates: start: 20220401, end: 20220402
  8. FILGRASTIM [Concomitant]
     Active Substance: FILGRASTIM
     Dosage: UNK
     Route: 065
     Dates: start: 20220410, end: 20220411
  9. CEFUROXIME SODIUM [Concomitant]
     Active Substance: CEFUROXIME SODIUM
     Dosage: UNK
     Route: 065
     Dates: start: 20220408, end: 20220412
  10. ATORVASTATIN [Concomitant]
     Active Substance: ATORVASTATIN
     Dosage: UNK
     Route: 065
     Dates: start: 2000
  11. PARALEN [PARACETAMOL] [Concomitant]
     Dosage: 1000 DF (1000 MG)
     Route: 048
     Dates: start: 20220331, end: 20220331
  12. PARALEN [PARACETAMOL] [Concomitant]
     Dosage: 500 DF (500 MG)
     Route: 048
     Dates: start: 20220414, end: 20220414
  13. PARALEN [PARACETAMOL] [Concomitant]
     Dosage: 1000 DF (1000 MG)
     Route: 048
     Dates: start: 20220407, end: 20220407
  14. ASPIRIN [Concomitant]
     Active Substance: ASPIRIN
     Dosage: UNK
     Route: 065
     Dates: start: 2000
  15. BISEPTOL [Concomitant]
     Active Substance: SULFAMETHOXAZOLE\TRIMETHOPRIM
     Dosage: UNK
     Route: 065
     Dates: start: 20220331
  16. SANGONA [Concomitant]
     Dosage: UNK
     Route: 065
     Dates: start: 2000
  17. TAMSULOSIN [Concomitant]
     Active Substance: TAMSULOSIN
     Dosage: UNK
     Route: 065
     Dates: start: 2000
  18. POTASSIUM CHLORIDE [Concomitant]
     Active Substance: POTASSIUM CHLORIDE
     Dosage: UNK
     Route: 065
     Dates: start: 2000
  19. SORBIFER DURULES [ASCORBIC ACID;FERROUS SULFATE] [Concomitant]
     Dosage: UNK
     Route: 065
     Dates: start: 2000
  20. ZYRTEC [Concomitant]
     Active Substance: CETIRIZINE HYDROCHLORIDE
     Dosage: 10 DF (10 MG)
     Route: 048
     Dates: start: 20220331, end: 20220331
  21. ZYRTEC [Concomitant]
     Active Substance: CETIRIZINE HYDROCHLORIDE
     Dosage: 10 DF (10 MG)
     Route: 048
     Dates: start: 20220407, end: 20220407
  22. ZYRTEC [Concomitant]
     Active Substance: CETIRIZINE HYDROCHLORIDE
     Dosage: 10 DF (10 MG)
     Route: 048
     Dates: start: 20220414, end: 20220414
  23. PREDNISONE [Concomitant]
     Active Substance: PREDNISONE
     Indication: Prophylaxis
     Dosage: 100 DF (100 MG)
     Route: 048
     Dates: start: 20220414, end: 20220417
  24. PREDNISONE [Concomitant]
     Active Substance: PREDNISONE
     Dosage: 100 DF (100 MG)
     Route: 048
     Dates: start: 20220331, end: 20220331
  25. PREDNISONE [Concomitant]
     Active Substance: PREDNISONE
     Dosage: 100 DF (100 MG)
     Route: 048
     Dates: start: 20220407, end: 20220410
  26. PANTOPRAZOLE SODIUM [Concomitant]
     Active Substance: PANTOPRAZOLE SODIUM
     Dosage: UNK
     Route: 065
     Dates: start: 20220331
  27. CALCIUM CARBONATE [Concomitant]
     Active Substance: CALCIUM CARBONATE
     Dosage: UNK
     Route: 065
     Dates: start: 20220331

REACTIONS (2)
  - Diabetic metabolic decompensation [Recovering/Resolving]
  - Cytokine release syndrome [Recovered/Resolved]

NARRATIVE: CASE EVENT DATE: 20220414
